FAERS Safety Report 15207929 (Version 2)
Quarter: 2018Q3

REPORT INFORMATION
  Report Type: Spontaneous
  Country: US (occurrence: US)
  Receive Date: 20180727
  Receipt Date: 20180808
  Transmission Date: 20181010
  Serious: No
  Sender: FDA-Public Use
  Company Number: US-PFIZER INC-2018301739

PATIENT
  Age: 62 Year
  Sex: Female

DRUGS (1)
  1. PREMARIN [Suspect]
     Active Substance: ESTROGENS, CONJUGATED
     Indication: VULVOVAGINAL DRYNESS
     Dosage: 2 DF, AS NEEDED (WEDNESDAY AND SUNDAY)
     Route: 067

REACTIONS (10)
  - Muscle spasms [Unknown]
  - Fatigue [Unknown]
  - Chills [Unknown]
  - Pain [Unknown]
  - Expired product administered [Unknown]
  - Abdominal distension [Unknown]
  - Asthenia [Unknown]
  - Feeling abnormal [Unknown]
  - Headache [Unknown]
  - Nausea [Unknown]
